FAERS Safety Report 8574737-7 (Version None)
Quarter: 2012Q3

REPORT INFORMATION
  Report Type: 
  Country: None (occurrence: None)
  Receive Date: 20120807
  Receipt Date: 20120731
  Transmission Date: 20120928
  Serious: No
  Sender: FDA-Public Use
  Company Number: US-BIOGENIDEC-2012BI025912

PATIENT
  Age: 56 Year
  Sex: Female

DRUGS (3)
  1. AVONEX [Suspect]
     Route: 030
     Dates: start: 20120714
  2. IBUPROFEN [Concomitant]
     Indication: PREMEDICATION
     Dates: start: 20120714
  3. AVONEX [Suspect]
     Indication: MULTIPLE SCLEROSIS
     Route: 030
     Dates: start: 20050101, end: 20050101

REACTIONS (5)
  - ARTHRALGIA [None]
  - FEELING HOT [None]
  - CHILLS [None]
  - BODY TEMPERATURE [None]
  - PAIN [None]
